FAERS Safety Report 9851974 (Version 1)
Quarter: 2014Q1

REPORT INFORMATION
  Report Type: Spontaneous
  Country: GB (occurrence: None)
  Receive Date: 20140127
  Receipt Date: 20140127
  Transmission Date: 20141002
  Serious: Yes (Death, Other)
  Sender: FDA-Public Use
  Company Number: GB-ALKEM-000465

PATIENT
  Age: 40 Year
  Sex: Female
  Weight: 78 kg

DRUGS (9)
  1. MYCOPHENOLATE MOFETIL (MYCOPHENOLATE MOFETIL) [Suspect]
     Indication: SYSTEMIC LUPUS ERYTHEMATOSUS
     Dosage: 1.00000000-G2.00 TIEMS PER -1.0DAYS, ORAL
     Route: 048
     Dates: start: 20091020, end: 20091022
  2. FERROUOS SULPHATE(FERROUS SULPHATE) [Concomitant]
  3. HYDROXOCOBALAMIN(HYDROXOCOBALAMIN) [Concomitant]
  4. PENICILLIN V(PENICILLIN V) [Concomitant]
  5. HYDROXYCHLOROQUINE(HYDROXYCHLOROQUINE) [Concomitant]
  6. CANDESARTAN CILEXETIL(CANDESARTAN CILEXETIL) [Concomitant]
  7. ASPIRIN(ASPIRIN) [Concomitant]
  8. PREDNISOLONE(PREDINSOLONE) [Concomitant]
  9. FOLIC ACID(FOLIC ACID) [Concomitant]

REACTIONS (3)
  - JC virus infection [None]
  - Progressive multifocal leukoencephalopathy [None]
  - Locked-in syndrome [None]
